FAERS Safety Report 11598854 (Version 1)
Quarter: 2015Q4

REPORT INFORMATION
  Report Type: Spontaneous
  Country: US (occurrence: US)
  Receive Date: 20151006
  Receipt Date: 20151006
  Transmission Date: 20160304
  Serious: No
  Sender: FDA-Public Use
  Company Number: US-BAYER-2015-437488

PATIENT
  Age: 54 Year
  Sex: Male
  Weight: 111.11 kg

DRUGS (1)
  1. MIRALAX [Suspect]
     Active Substance: POLYETHYLENE GLYCOL 3350
     Indication: LAXATIVE SUPPORTIVE CARE
     Dosage: 1 DF, ONCE
     Route: 048
     Dates: start: 2007

REACTIONS (1)
  - Product use issue [None]

NARRATIVE: CASE EVENT DATE: 2007
